FAERS Safety Report 5267462-1 (Version None)
Quarter: 2007Q1

REPORT INFORMATION
  Report Type: 
  Country: None (occurrence: None)
  Receive Date: 20070316
  Receipt Date: 20070305
  Transmission Date: 20070707
  Serious: Yes (Other)
  Sender: FDA-Public Use
  Company Number: PHBS2007JP04161

PATIENT
  Age: 69 Year
  Sex: Male

DRUGS (1)
  1. TEGRETOL [Suspect]
     Indication: EPILEPSY
     Dosage: 400 MG AND 200 MG IN TURN
     Route: 048
     Dates: start: 20070221

REACTIONS (1)
  - ATRIOVENTRICULAR BLOCK [None]
